FAERS Safety Report 4398227-0 (Version None)
Quarter: 2004Q3

REPORT INFORMATION
  Report Type: 
  Country: None (occurrence: None)
  Receive Date: 20040715
  Receipt Date: 20040705
  Transmission Date: 20050211
  Serious: Yes (Other)
  Sender: FDA-Public Use
  Company Number: 200416648GDDC

PATIENT
  Sex: Male

DRUGS (1)
  1. TELITHROMYCIN [Suspect]
     Indication: INFECTION
     Route: 048
     Dates: start: 20040628, end: 20040702

REACTIONS (2)
  - GENERALISED ERYTHEMA [None]
  - PHOTOSENSITIVITY REACTION [None]
